FAERS Safety Report 8364269-3 (Version None)
Quarter: 2012Q2

REPORT INFORMATION
  Report Type: 
  Country: None (occurrence: None)
  Receive Date: 20120516
  Receipt Date: 20120510
  Transmission Date: 20120825
  Serious: Yes (Hospitalization, Other)
  Sender: FDA-Public Use
  Company Number: US-BAYER-2011-086538

PATIENT
  Age: 39 Year
  Sex: Female
  Weight: 90.703 kg

DRUGS (2)
  1. CLONAZEPAM [Concomitant]
     Indication: ANXIETY
     Dosage: UNK
     Dates: start: 20010101
  2. YASMIN [Suspect]
     Dosage: UNK
     Dates: start: 20011101, end: 20040401

REACTIONS (9)
  - INJURY [None]
  - CHOLELITHIASIS [None]
  - THROMBOPHLEBITIS SUPERFICIAL [None]
  - DEEP VEIN THROMBOSIS [None]
  - FEAR [None]
  - BIPOLAR DISORDER [None]
  - GALLBLADDER DISORDER [None]
  - PAIN [None]
  - ANXIETY [None]
